FAERS Safety Report 9453984 (Version 2)
Quarter: 2013Q3

REPORT INFORMATION
  Report Type: Spontaneous
  Country: BR (occurrence: BR)
  Receive Date: 20130812
  Receipt Date: 20130816
  Transmission Date: 20140515
  Serious: Yes (Hospitalization)
  Sender: FDA-Public Use
  Company Number: BR-PFIZER INC-2013228714

PATIENT
  Age: 66 Year
  Sex: Female
  Weight: 75 kg

DRUGS (2)
  1. OLMETEC HCT [Suspect]
     Indication: HYPERTENSION
     Dosage: [OLMESARTAN MEDOXOMIL 20 MG]/ [HYDROCHLOROTHIAZIDE 12.5 MG] (1 TABLET), DAILY
     Route: 048
     Dates: start: 20090116
  2. FRONTAL [Suspect]
     Indication: SLEEP DISORDER
     Dosage: 1 TABLET OF 2 MG, 1X/DAY (AT NIGHT)
     Route: 048
     Dates: start: 20110704

REACTIONS (3)
  - Syncope [Recovered/Resolved]
  - Feeling abnormal [Recovered/Resolved]
  - Drug ineffective [Unknown]
